FAERS Safety Report 5954690-2 (Version None)
Quarter: 2008Q4

REPORT INFORMATION
  Report Type: 
  Country: None (occurrence: None)
  Receive Date: 20081117
  Receipt Date: 20081106
  Transmission Date: 20090506
  Serious: Yes (Other)
  Sender: FDA-Public Use
  Company Number: PHEH2008US10028

PATIENT
  Age: 68 Year
  Sex: Female
  Weight: 59.864 kg

DRUGS (2)
  1. GLEEVEC [Suspect]
     Indication: CHRONIC EOSINOPHILIC LEUKAEMIA
     Dosage: 100 MG, QD
     Route: 048
     Dates: start: 20080401, end: 20080601
  2. GLEEVEC [Suspect]
     Dosage: 400 MG, QD
     Route: 048
     Dates: start: 20080601, end: 20080701

REACTIONS (5)
  - AUTOIMMUNE HEPATITIS [None]
  - BIOPSY LIVER [None]
  - HEPATIC ENZYME INCREASED [None]
  - NASAL POLYPS [None]
  - NEUTROPENIA [None]
